FAERS Safety Report 7724174-X (Version None)
Quarter: 2011Q3

REPORT INFORMATION
  Report Type: 
  Country: None (occurrence: None)
  Receive Date: 20110901
  Receipt Date: 20110823
  Transmission Date: 20111222
  Serious: Yes (Death, Life-Threatening, Other)
  Sender: FDA-Public Use
  Company Number: JP-ROCHE-746631

PATIENT
  Sex: Female
  Weight: 47 kg

DRUGS (5)
  1. OXALIPLATIN [Concomitant]
     Dates: start: 20100215, end: 20101027
  2. AVASTIN [Suspect]
     Indication: LARGE INTESTINE CARCINOMA
     Dosage: DOSAGE IS UNCERTAIN.; PERMANTELY DISCONTINUED
     Route: 041
     Dates: start: 20100215, end: 20101027
  3. MELOXICAM [Concomitant]
     Dates: start: 20100915, end: 20101110
  4. CAPECITABINE [Suspect]
     Indication: COLON CANCER METASTATIC
     Route: 048
     Dates: start: 20100215, end: 20101110
  5. MOBIC [Concomitant]
     Route: 048
     Dates: start: 20100915, end: 20101110

REACTIONS (4)
  - INFECTIOUS PERITONITIS [None]
  - ILEUS [None]
  - MALIGNANT ASCITES [None]
  - GASTROINTESTINAL PERFORATION [None]
